FAERS Safety Report 25504034 (Version 4)
Quarter: 2025Q3

REPORT INFORMATION
  Report Type: Spontaneous
  Country: US (occurrence: US)
  Receive Date: 20250702
  Receipt Date: 20250731
  Transmission Date: 20251020
  Serious: No
  Sender: KARYOPHARM THERAPEUTICS
  Company Number: US-KARYOPHARM-2025KPT100435

PATIENT

DRUGS (9)
  1. SELINEXOR [Suspect]
     Active Substance: SELINEXOR
     Indication: Brain neoplasm malignant
     Route: 048
     Dates: start: 20250623, end: 2025
  2. SELINEXOR [Suspect]
     Active Substance: SELINEXOR
     Route: 048
     Dates: start: 2025
  3. ATIVAN [Concomitant]
     Active Substance: LORAZEPAM
  4. DEXAMETHASONE [Concomitant]
     Active Substance: DEXAMETHASONE
  5. ESCITALOPRAM OXALATE [Concomitant]
     Active Substance: ESCITALOPRAM OXALATE
  6. HYDROMORPHONE [Concomitant]
     Active Substance: HYDROMORPHONE
  7. LACTULOSE [Concomitant]
     Active Substance: LACTULOSE
  8. OLANZAPINE [Concomitant]
     Active Substance: OLANZAPINE
  9. XARELTO [Concomitant]
     Active Substance: RIVAROXABAN

REACTIONS (5)
  - Diarrhoea [Recovering/Resolving]
  - Pneumonia [Unknown]
  - Dizziness [Unknown]
  - Nausea [Unknown]
  - Off label use [Unknown]

NARRATIVE: CASE EVENT DATE: 20250101
